FAERS Safety Report 19283921 (Version 1)
Quarter: 2021Q2

REPORT INFORMATION
  Report Type: Report from Study
  Country: None (occurrence: US)
  Receive Date: 20210520
  Receipt Date: 20210520
  Transmission Date: 20210717
  Serious: Yes (Hospitalization, Other)
  Sender: FDA-Public Use
  Company Number: US-ABBVIE-21K-163-3908848-00

PATIENT
  Age: 61 Year
  Sex: Female

DRUGS (10)
  1. HUMIRA [Suspect]
     Active Substance: ADALIMUMAB
     Indication: RHEUMATOID ARTHRITIS
     Route: 058
     Dates: start: 2005, end: 2005
  2. ENBREL [Suspect]
     Active Substance: ETANERCEPT
     Route: 065
     Dates: start: 20210211
  3. PREDNISONE. [Concomitant]
     Active Substance: PREDNISONE
     Indication: PRODUCT USED FOR UNKNOWN INDICATION
     Dates: start: 2018, end: 2018
  4. RINVOQ [Concomitant]
     Active Substance: UPADACITINIB
     Indication: PRODUCT USED FOR UNKNOWN INDICATION
     Route: 048
  5. SIMPONI [Concomitant]
     Active Substance: GOLIMUMAB
     Indication: PRODUCT USED FOR UNKNOWN INDICATION
     Dates: start: 2002, end: 200202
  6. HUMIRA [Suspect]
     Active Substance: ADALIMUMAB
     Route: 058
     Dates: start: 2018, end: 202002
  7. ENBREL [Suspect]
     Active Substance: ETANERCEPT
     Indication: RHEUMATOID ARTHRITIS
     Route: 065
     Dates: start: 200107, end: 2005
  8. BENADRYL [Concomitant]
     Active Substance: DIPHENHYDRAMINE HYDROCHLORIDE
     Indication: PRODUCT USED FOR UNKNOWN INDICATION
     Route: 042
     Dates: start: 2018, end: 2018
  9. LYRICA [Suspect]
     Active Substance: PREGABALIN
     Indication: INFLAMMATION
     Route: 065
     Dates: start: 2018, end: 201808
  10. ORENCIA [Concomitant]
     Active Substance: ABATACEPT
     Indication: PRODUCT USED FOR UNKNOWN INDICATION
     Dates: start: 2005, end: 202002

REACTIONS (26)
  - Rheumatoid arthritis [Unknown]
  - Inflammation [Unknown]
  - Therapeutic product effect decreased [Unknown]
  - Procedural pain [Unknown]
  - Colon cancer [Recovered/Resolved]
  - Drug hypersensitivity [Unknown]
  - Wrong technique in product usage process [Unknown]
  - Pain in extremity [Unknown]
  - Post procedural infection [Recovered/Resolved]
  - Nasopharyngitis [Unknown]
  - Scar [Unknown]
  - Volvulus [Unknown]
  - Intentional product misuse [Unknown]
  - Dyspepsia [Recovered/Resolved]
  - Facial paralysis [Recovered/Resolved]
  - Post procedural complication [Unknown]
  - Gait inability [Unknown]
  - Procedural pain [Recovered/Resolved]
  - Post procedural swelling [Recovered/Resolved]
  - Bell^s palsy [Recovered/Resolved]
  - Mouth injury [Unknown]
  - Large intestinal obstruction [Unknown]
  - Tooth disorder [Recovered/Resolved]
  - Abdominal distension [Unknown]
  - Eructation [Unknown]
  - Impaired quality of life [Unknown]

NARRATIVE: CASE EVENT DATE: 20050704
